FAERS Safety Report 5768086-X (Version None)
Quarter: 2008Q2

REPORT INFORMATION
  Report Type: 
  Country: None (occurrence: None)
  Receive Date: 20080601
  Receipt Date: 20080311
  Transmission Date: 20081010
  Serious: No
  Sender: FDA-Public Use
  Company Number: US200803002695

PATIENT
  Age: 56 Year
  Sex: Female
  Weight: 124.7 kg

DRUGS (6)
  1. BYETTA [Suspect]
     Indication: TYPE 2 DIABETES MELLITUS
     Dosage: 5 UG, 2/D, SUBCUTANEOUS; 10 MG, 2/D, SUBCUTANEOUS
     Route: 058
     Dates: start: 20060101, end: 20060101
  2. BYETTA [Suspect]
     Indication: TYPE 2 DIABETES MELLITUS
     Dosage: 5 UG, 2/D, SUBCUTANEOUS; 10 MG, 2/D, SUBCUTANEOUS
     Route: 058
     Dates: start: 20060101
  3. STARLIX [Concomitant]
  4. ALTACE [Concomitant]
  5. EFEXOR XR (VENLAFAXINE) [Concomitant]
  6. CRESTOR [Concomitant]

REACTIONS (2)
  - BLOOD GLUCOSE DECREASED [None]
  - MENTAL IMPAIRMENT [None]
